FAERS Safety Report 24672093 (Version 1)
Quarter: 2024Q4

REPORT INFORMATION
  Report Type: Report from Study
  Country: EG (occurrence: EG)
  Receive Date: 20241127
  Receipt Date: 20241127
  Transmission Date: 20250115
  Serious: Yes (Other)
  Sender: SANDOZ
  Company Number: EG-SANDOZ-SDZ2024EG090844

PATIENT
  Sex: Female
  Weight: 24 kg

DRUGS (4)
  1. OMNITROPE [Suspect]
     Active Substance: SOMATROPIN
     Indication: Growth hormone deficiency
     Dosage: 0.8 MG, QD
     Route: 058
     Dates: start: 201909, end: 2022
  2. OMEGA 3 [Suspect]
     Active Substance: CAPSAICIN
     Indication: Supplementation therapy
     Dosage: UNK, 1 GELATIN COATED CAPSULE EVERY OTHER DAY
     Route: 048
     Dates: start: 20241025
  3. DIETARY SUPPLEMENT\MINERALS\VITAMINS [Suspect]
     Active Substance: DIETARY SUPPLEMENT\MINERALS\VITAMINS
     Indication: Mineral supplementation
     Dosage: 5 CM, QD
     Route: 048
     Dates: start: 20241025
  4. ZINC [Suspect]
     Active Substance: ZINC
     Indication: Supplementation therapy
     Dosage: ONE TABLET PER DAY
     Route: 048
     Dates: start: 20241025

REACTIONS (8)
  - Tooth disorder [Not Recovered/Not Resolved]
  - Growth retardation [Not Recovered/Not Resolved]
  - Mental disorder [Not Recovered/Not Resolved]
  - Decreased appetite [Not Recovered/Not Resolved]
  - Therapy cessation [Unknown]
  - Product availability issue [Unknown]
  - Condition aggravated [Unknown]
  - Weight fluctuation [Unknown]

NARRATIVE: CASE EVENT DATE: 20220101
